FAERS Safety Report 5442445-7 (Version None)
Quarter: 2007Q3

REPORT INFORMATION
  Report Type: 
  Country: None (occurrence: None)
  Receive Date: 20070904
  Receipt Date: 20070823
  Transmission Date: 20080115
  Serious: Yes (Other)
  Sender: FDA-Public Use
  Company Number: GB-PFIZER INC-2007071956

PATIENT
  Age: 29 Year
  Sex: Female

DRUGS (3)
  1. VARENICLINE [Suspect]
     Indication: SMOKING CESSATION THERAPY
     Route: 048
     Dates: start: 20070115, end: 20070214
  2. CITALOPRAM [Concomitant]
     Indication: DEPRESSION
     Route: 048
  3. ZOPICLONE [Concomitant]
     Indication: INSOMNIA
     Route: 048

REACTIONS (4)
  - AMENORRHOEA [None]
  - DEPRESSED MOOD [None]
  - FATIGUE [None]
  - MALAISE [None]
